FAERS Safety Report 7645073-8 (Version None)
Quarter: 2011Q3

REPORT INFORMATION
  Report Type: 
  Country: None (occurrence: None)
  Receive Date: 20110729
  Receipt Date: 20110720
  Transmission Date: 20111222
  Serious: Yes (Hospitalization, Disabling, Other)
  Sender: FDA-Public Use
  Company Number: US-ASTRAZENECA-2011SE19694

PATIENT
  Age: 53 Year
  Sex: Male
  Weight: 108.9 kg

DRUGS (10)
  1. DIAZEPAM [Concomitant]
     Dates: start: 20110627
  2. TOPROL-XL [Suspect]
     Indication: HYPERTENSION
     Route: 048
     Dates: start: 20070904, end: 20070917
  3. TOPROL-XL [Suspect]
     Route: 048
     Dates: start: 20070917
  4. PLAVIX [Concomitant]
     Dates: start: 20101130
  5. HYDROCODONE BITARTRATE AND ACETAMINOPHEN [Concomitant]
     Dosage: 10-650 MG, 1 TABLET THREE TIMES DAILY
     Dates: start: 20110628
  6. TOPROL-XL [Suspect]
     Route: 048
     Dates: start: 20101130
  7. LIPITOR [Concomitant]
     Dates: start: 20101213
  8. HYDRALAZINE HCL [Concomitant]
     Indication: ESSENTIAL HYPERTENSION
     Dates: start: 20110310
  9. DIOVAN HCT [Concomitant]
     Dosage: 320/12,5 MG 1 DF DAILY
     Dates: start: 20101130
  10. PROCARDIA XL [Concomitant]
     Dates: start: 20110310

REACTIONS (4)
  - CEREBROVASCULAR ACCIDENT [None]
  - HYPERTENSION [None]
  - TREATMENT NONCOMPLIANCE [None]
  - MEMORY IMPAIRMENT [None]
